FAERS Safety Report 20173195 (Version 1)
Quarter: 2021Q4

REPORT INFORMATION
  Report Type: Report from Study
  Country: BR (occurrence: BR)
  Receive Date: 20211211
  Receipt Date: 20211211
  Transmission Date: 20220304
  Serious: Yes (Other)
  Sender: FDA-Public Use
  Company Number: BR-NOVARTISPH-NVSC2021BR279287

PATIENT
  Sex: Male

DRUGS (2)
  1. COSENTYX [Suspect]
     Active Substance: SECUKINUMAB
     Indication: Psoriatic arthropathy
     Dosage: 300 MG
     Route: 065
     Dates: start: 20210901
  2. COSENTYX [Suspect]
     Active Substance: SECUKINUMAB
     Dosage: UNK
     Route: 065
     Dates: start: 20211126

REACTIONS (9)
  - Coronary artery occlusion [Recovering/Resolving]
  - Cough [Unknown]
  - Rheumatic disorder [Unknown]
  - Peripheral swelling [Recovered/Resolved]
  - Blister [Recovered/Resolved]
  - Blister [Recovering/Resolving]
  - Peripheral vascular disorder [Recovering/Resolving]
  - Movement disorder [Recovering/Resolving]
  - Nail psoriasis [Recovering/Resolving]
